FAERS Safety Report 17050584 (Version 1)
Quarter: 2019Q4

REPORT INFORMATION
  Report Type: Spontaneous
  Country: CN (occurrence: CN)
  Receive Date: 20191119
  Receipt Date: 20191119
  Transmission Date: 20200122
  Serious: Yes (Other)
  Sender: FDA-Public Use
  Company Number: CN-BAXTER-2019BAX023004

PATIENT
  Age: 32 Year
  Sex: Female
  Weight: 51 kg

DRUGS (8)
  1. 0.9% SODIUM CHLORIDE INJECTION [Suspect]
     Active Substance: SODIUM CHLORIDE
     Indication: VEHICLE SOLUTION USE
     Route: 041
     Dates: start: 20190830, end: 20190912
  2. 0.9% SODIUM CHLORIDE INJECTION [Suspect]
     Active Substance: SODIUM CHLORIDE
     Route: 041
     Dates: start: 20190912, end: 20190924
  3. SALFORD [MESALAMINE] [Suspect]
     Active Substance: MESALAMINE
     Indication: COLITIS ULCERATIVE
     Dosage: MESALAZINE EXTERNAL ENEMA, QN
     Route: 054
     Dates: start: 20190819, end: 20190929
  4. SALFORD [MESALAMINE] [Suspect]
     Active Substance: MESALAMINE
     Indication: ANTIINFLAMMATORY THERAPY
  5. MESALAZINE [Suspect]
     Active Substance: MESALAMINE
     Indication: COLITIS ULCERATIVE
     Dosage: SUSTAINED RELEASE GRANULES
     Route: 048
     Dates: start: 20190819, end: 20190929
  6. GANCICLOVIR. [Suspect]
     Active Substance: GANCICLOVIR
     Indication: CYTOMEGALOVIRUS INFECTION
     Dosage: GANCICLOVIR FOR INJECTION 0.25G + 0.9% SODIUM CHLORIDE INJECTION 250ML?INDUCTION TREATMENT
     Route: 041
     Dates: start: 20190830, end: 20190912
  7. GANCICLOVIR. [Suspect]
     Active Substance: GANCICLOVIR
     Indication: ANTIVIRAL TREATMENT
     Dosage: GANCICLOVIR FOR INJECTION 0.25G + 0.9% SODIUM CHLORIDE INJECTION 250 ML?MAINTENANCE TREATMENT
     Route: 041
     Dates: start: 20190912, end: 20190924
  8. MESALAZINE [Suspect]
     Active Substance: MESALAMINE
     Indication: ANTIINFLAMMATORY THERAPY

REACTIONS (2)
  - Pancytopenia [Recovering/Resolving]
  - Rash [Recovering/Resolving]

NARRATIVE: CASE EVENT DATE: 20190924
